FAERS Safety Report 4268540-6 (Version None)
Quarter: 2004Q1

REPORT INFORMATION
  Report Type: 
  Country: None (occurrence: None)
  Receive Date: 20040109
  Receipt Date: 20040109
  Transmission Date: 20041129
  Serious: Yes (Life-Threatening, Hospitalization)
  Sender: FDA-Public Use
  Company Number: None

PATIENT
  Age: 35 Year
  Sex: Female
  Weight: 58.9676 kg

DRUGS (1)
  1. SULFAMETHOXAZOLE + TRIMETHOPRIM [Suspect]
     Indication: SINUSITIS
     Dosage: PILLS, ORALLY 2X A DAY
     Route: 048

REACTIONS (3)
  - KERATOCONJUNCTIVITIS SICCA [None]
  - PHARMACEUTICAL PRODUCT COMPLAINT [None]
  - STEVENS-JOHNSON SYNDROME [None]
